FAERS Safety Report 16341462 (Version 1)
Quarter: 2019Q2

REPORT INFORMATION
  Report Type: Spontaneous
  Country: US (occurrence: US)
  Receive Date: 20190416
  Receipt Date: 20190416
  Transmission Date: 20190711
  Serious: No
  Sender: FDA-Public Use
  Company Number: None

PATIENT
  Sex: Female

DRUGS (1)
  1. HARVONI [Suspect]
     Active Substance: LEDIPASVIR\SOFOSBUVIR
     Indication: HEPATITIS VIRAL
     Dosage: 90/400MG DAILY BY MOUTH
     Route: 048
     Dates: start: 201902

REACTIONS (3)
  - Decreased appetite [None]
  - Headache [None]
  - Diarrhoea [None]
